FAERS Safety Report 10276825 (Version 1)
Quarter: 2014Q3

REPORT INFORMATION
  Report Type: Spontaneous
  Country: US (occurrence: US)
  Receive Date: 20140703
  Receipt Date: 20140703
  Transmission Date: 20150326
  Serious: Yes (Other)
  Sender: FDA-Public Use
  Company Number: US-GLAXOSMITHKLINE-A1079418A

PATIENT
  Age: 44 Year
  Sex: Female

DRUGS (1)
  1. ABREVA [Suspect]
     Active Substance: DOCOSANOL
     Indication: ORAL HERPES
     Route: 061
     Dates: start: 20140628, end: 20140630

REACTIONS (4)
  - Drug administration error [Recovered/Resolved]
  - Application site ulcer [Recovered/Resolved]
  - Application site vesicles [Not Recovered/Not Resolved]
  - Application site scab [Not Recovered/Not Resolved]
